FAERS Safety Report 13054983 (Version 2)
Quarter: 2017Q1

REPORT INFORMATION
  Report Type: Spontaneous
  Country: CH (occurrence: CH)
  Receive Date: 20161222
  Receipt Date: 20170206
  Transmission Date: 20170428
  Serious: Yes (Other)
  Sender: FDA-Public Use
  Company Number: CH-TEVA-722301ISR

PATIENT
  Age: 75 Year
  Sex: Male
  Weight: 93 kg

DRUGS (6)
  1. AMIODARON MEPHA 200 [Suspect]
     Active Substance: AMIODARONE HYDROCHLORIDE
     Indication: ATRIAL FIBRILLATION
     Dosage: STRENGTH: 200MG, CONTINUING TREATMENT
     Route: 048
     Dates: start: 20160116
  2. VI-DE 3 [Concomitant]
     Active Substance: CHOLECALCIFEROL
     Route: 048
  3. XARELTO [Concomitant]
     Active Substance: RIVAROXABAN
     Route: 048
  4. CONCOR [Concomitant]
     Active Substance: BISOPROLOL FUMARATE
     Route: 048
  5. OMEPRAZOL [Concomitant]
     Active Substance: OMEPRAZOLE
     Route: 048
  6. MICARDIS [Concomitant]
     Active Substance: TELMISARTAN
     Route: 048

REACTIONS (8)
  - Nightmare [Recovered/Resolved]
  - Hypothyroidism [Not Recovered/Not Resolved]
  - Dizziness [Recovered/Resolved]
  - Affect lability [Recovered/Resolved]
  - Decreased appetite [Recovered/Resolved]
  - Cardiac failure [Recovered/Resolved]
  - Cognitive disorder [Recovered/Resolved]
  - Bradycardia [Recovered/Resolved]

NARRATIVE: CASE EVENT DATE: 201602
